FAERS Safety Report 25487929 (Version 1)
Quarter: 2025Q2

REPORT INFORMATION
  Report Type: Spontaneous
  Country: US (occurrence: US)
  Receive Date: 20250627
  Receipt Date: 20250627
  Transmission Date: 20250716
  Serious: No
  Sender: PFIZER
  Company Number: US-PFIZER INC-PV202500071911

PATIENT
  Age: 53 Year
  Sex: Female

DRUGS (4)
  1. DUAVEE [Suspect]
     Active Substance: BAZEDOXIFENE ACETATE\ESTROGENS, CONJUGATED
     Dosage: 1 DF, DAILY
     Route: 048
     Dates: start: 20250420, end: 20250612
  2. CEPHALEXIN [Concomitant]
     Active Substance: CEPHALEXIN
  3. ESTRACE [Concomitant]
     Active Substance: ESTRADIOL
  4. LEVOTHYROXINE [Concomitant]
     Active Substance: LEVOTHYROXINE

REACTIONS (2)
  - Temperature intolerance [Unknown]
  - Hot flush [Unknown]

NARRATIVE: CASE EVENT DATE: 20250601
